FAERS Safety Report 7200500-5 (Version None)
Quarter: 2010Q4

REPORT INFORMATION
  Report Type: 
  Country: None (occurrence: None)
  Receive Date: 20101228
  Receipt Date: 20101216
  Transmission Date: 20110411
  Serious: Yes (Hospitalization, Disabling, Other)
  Sender: FDA-Public Use
  Company Number: US-PFIZER INC-2010173502

PATIENT
  Sex: Male
  Weight: 122.46 kg

DRUGS (1)
  1. SERTRALINE HYDROCHLORIDE [Suspect]
     Indication: DEPRESSION
     Dosage: 240MG EVERY 4 HOURS
     Dates: start: 19820101, end: 19820101

REACTIONS (17)
  - AMNESIA [None]
  - AZOTAEMIA [None]
  - BLADDER DILATATION [None]
  - BLINDNESS [None]
  - DEMENTIA [None]
  - FALL [None]
  - HIP FRACTURE [None]
  - MACULAR DEGENERATION [None]
  - MYOCARDIAL INFARCTION [None]
  - NEOPLASM MALIGNANT [None]
  - OBSTRUCTIVE UROPATHY [None]
  - OEDEMA [None]
  - PAIN IN EXTREMITY [None]
  - PROSTATOMEGALY [None]
  - PYREXIA [None]
  - SPINAL DISORDER [None]
  - WEIGHT DECREASED [None]
